FAERS Safety Report 4896644-3 (Version None)
Quarter: 2006Q1

REPORT INFORMATION
  Report Type: 
  Country: None (occurrence: None)
  Receive Date: 20060131
  Receipt Date: 20050823
  Transmission Date: 20060701
  Serious: Yes (Hospitalization)
  Sender: FDA-Public Use
  Company Number: FR-ROCHE-415405

PATIENT
  Age: 64 Year
  Sex: Male

DRUGS (14)
  1. RIVOTRIL [Suspect]
     Indication: NEUROPATHY PERIPHERAL
     Route: 048
     Dates: end: 20050304
  2. VASTEN [Suspect]
     Route: 048
     Dates: end: 20050304
  3. TRIATEC [Suspect]
     Indication: ESSENTIAL HYPERTENSION
     Route: 048
     Dates: end: 20050307
  4. PLAVIX [Suspect]
     Indication: ARTERIAL STENOSIS
     Route: 048
     Dates: start: 20050218, end: 20050303
  5. DEROXAT [Suspect]
     Route: 048
     Dates: end: 20050308
  6. UN ALPHA [Concomitant]
     Route: 048
     Dates: end: 20050311
  7. FUROSEMIDE [Concomitant]
     Route: 048
  8. EUPRESSYL [Concomitant]
     Route: 048
  9. LOXEN LP [Concomitant]
     Route: 048
  10. MIXTARD HUMAN 70/30 [Concomitant]
     Dosage: 18 IU AM AND 12 IU PM.
  11. TEMESTA [Concomitant]
     Route: 048
  12. NOCTAMIDE [Concomitant]
     Route: 048
  13. INIPOMP [Concomitant]
     Route: 048
  14. PARACETAMOL [Concomitant]
     Route: 048

REACTIONS (1)
  - RHABDOMYOLYSIS [None]
